FAERS Safety Report 5775405-7 (Version None)
Quarter: 2008Q2

REPORT INFORMATION
  Report Type: 
  Country: None (occurrence: None)
  Receive Date: 20080613
  Receipt Date: 20080606
  Transmission Date: 20081010
  Serious: Yes (Other)
  Sender: FDA-Public Use
  Company Number: 2008014864

PATIENT
  Age: 38 Year
  Sex: Female
  Weight: 99.7913 kg

DRUGS (2)
  1. LISTERINE ANTISEPTIC MOUTHWASH (MENTHOL, METHYL SALICYLATE, EUCALYPTOL [Suspect]
     Indication: DENTAL DISORDER PROPHYLAXIS
     Dosage: 1 CAPFUL ONCE,ORAL
     Route: 048
     Dates: start: 20080603, end: 20080604
  2. PAMPRIN (MEPYRAMINE MALEATE, PAMABROM, PARACETAMOL) [Concomitant]

REACTIONS (4)
  - APPLICATION SITE BURN [None]
  - GINGIVAL DISORDER [None]
  - ORAL DISCOMFORT [None]
  - THERMAL BURN [None]
